FAERS Safety Report 20610584 (Version 1)
Quarter: 2022Q1

REPORT INFORMATION
  Report Type: Spontaneous
  Country: FR (occurrence: FR)
  Receive Date: 20220318
  Receipt Date: 20220318
  Transmission Date: 20220424
  Serious: Yes (Congenital Anomaly, Other)
  Sender: FDA-Public Use
  Company Number: FR-ABBVIE-22K-056-4321499-00

PATIENT
  Sex: Male

DRUGS (1)
  1. VALPROATE SODIUM [Suspect]
     Active Substance: VALPROATE SODIUM
     Indication: Maternal exposure timing unspecified
     Route: 064

REACTIONS (14)
  - Limb malformation [Unknown]
  - Arnold-Chiari malformation [Unknown]
  - Intellectual disability [Unknown]
  - Dysmorphism [Unknown]
  - Elbow deformity [Unknown]
  - Tooth malformation [Unknown]
  - Visual impairment [Unknown]
  - Language disorder [Unknown]
  - Psychomotor retardation [Unknown]
  - Spinal deformity [Unknown]
  - Withdrawal syndrome [Unknown]
  - Ear, nose and throat disorder [Unknown]
  - Dyspepsia [Unknown]
  - Foetal exposure during pregnancy [Unknown]

NARRATIVE: CASE EVENT DATE: 19890302
